FAERS Safety Report 9925499 (Version 4)
Quarter: 2016Q1

REPORT INFORMATION
  Report Type: Report from Study
  Country: JP (occurrence: JP)
  Receive Date: 20140226
  Receipt Date: 20160125
  Transmission Date: 20160526
  Serious: Yes (Death, Other)
  Sender: FDA-Public Use
  Company Number: JP-ALEXION PHARMACEUTICALS INC.-A201400618

PATIENT
  Age: 38 Year
  Sex: Male
  Weight: 58 kg

DRUGS (16)
  1. HANP [Concomitant]
     Active Substance: CARPERITIDE
     Indication: CARDIAC FAILURE ACUTE
     Dosage: 5333 ?G, QD
     Route: 042
     Dates: start: 20140124, end: 20140126
  2. CUBICIN [Concomitant]
     Active Substance: DAPTOMYCIN
     Indication: INFECTION PROPHYLAXIS
     Dosage: 350 MG, QD
     Route: 042
     Dates: start: 20140214, end: 20140214
  3. FLUMARIN                           /00889901/ [Concomitant]
     Indication: PYELONEPHRITIS
     Dosage: 1 G, 1-3 TIMES
     Route: 042
     Dates: start: 20140131, end: 20140213
  4. CYCLOPHOSPHAMIDE. [Suspect]
     Active Substance: CYCLOPHOSPHAMIDE
     Indication: PRODUCT USED FOR UNKNOWN INDICATION
     Dosage: 300 MG/M2, QD
     Route: 042
     Dates: start: 200807, end: 200902
  5. PREDONINE [Concomitant]
     Active Substance: PREDNISOLONE\PREDNISOLONE ACETATE\PREDNISOLONE SODIUM SUCCINATE
     Indication: ACUTE GRAFT VERSUS HOST DISEASE
     Dosage: 20 MG, QD
     Route: 042
     Dates: start: 20140124, end: 20140131
  6. ORGARAN [Concomitant]
     Active Substance: DANAPAROID SODIUM
     Indication: THROMBOTIC MICROANGIOPATHY
     Dosage: 1250 IU, 1-2 TIMES
     Route: 042
     Dates: start: 20140206, end: 20140208
  7. MEROPEN                            /01250501/ [Concomitant]
     Active Substance: MEROPENEM
     Indication: PYELONEPHRITIS
     Dosage: 0.5 G, 3-6 TIMES
     Route: 042
     Dates: start: 20140122, end: 20140216
  8. PREDONINE [Concomitant]
     Active Substance: PREDNISOLONE\PREDNISOLONE ACETATE\PREDNISOLONE SODIUM SUCCINATE
     Dosage: 10 MG, QD
     Route: 041
     Dates: start: 20140201, end: 20140211
  9. ADETPHOS-L [Concomitant]
     Indication: CARDIAC FAILURE ACUTE
     Dosage: 20 MG, QD
     Route: 042
     Dates: start: 20140212, end: 20140212
  10. NOVO HEPARIN [Concomitant]
     Active Substance: HEPARIN SODIUM
     Indication: THROMBOTIC MICROANGIOPATHY
     Dosage: 9400 IU, QD
     Route: 042
     Dates: start: 20140212, end: 20140216
  11. NONTHRON [Concomitant]
     Indication: THROMBOTIC MICROANGIOPATHY
     Dosage: 1333 IU, QD
     Route: 042
     Dates: start: 20140214, end: 20140216
  12. SOLIRIS [Suspect]
     Active Substance: ECULIZUMAB
     Indication: HAEMOLYTIC URAEMIC SYNDROME
     Dosage: 900 MG, SINGLE
     Route: 042
     Dates: start: 20140213, end: 20140213
  13. DOXORUBICIN [Suspect]
     Active Substance: DOXORUBICIN
     Indication: PRODUCT USED FOR UNKNOWN INDICATION
     Dosage: 50 MG/M2, QD
     Route: 042
     Dates: start: 200811, end: 200811
  14. FUNGUARD [Concomitant]
     Active Substance: MICAFUNGIN SODIUM
     Indication: INFECTION PROPHYLAXIS
     Dosage: 150 MG, QD
     Route: 042
     Dates: start: 20140127, end: 20140216
  15. TARGOCID [Concomitant]
     Active Substance: TEICOPLANIN
     Indication: INFECTION PROPHYLAXIS
     Dosage: 600 MG, QD
     Route: 042
     Dates: start: 20140206, end: 20140212
  16. RECOMODULIN [Concomitant]
     Active Substance: THROMBOMODULIN ALFA
     Indication: THROMBOTIC MICROANGIOPATHY
     Dosage: 7500 IU, QD
     Route: 042
     Dates: start: 20140121, end: 20140205

REACTIONS (1)
  - Cardiac arrest [Fatal]

NARRATIVE: CASE EVENT DATE: 20140216
